FAERS Safety Report 7757329-9 (Version None)
Quarter: 2011Q3

REPORT INFORMATION
  Report Type: 
  Country: None (occurrence: None)
  Receive Date: 20110916
  Receipt Date: 20110912
  Transmission Date: 20111222
  Serious: Yes (Hospitalization)
  Sender: FDA-Public Use
  Company Number: FR-ABBOTT-11P-056-0725062-00

PATIENT
  Sex: Male
  Weight: 35 kg

DRUGS (12)
  1. ADVIL LIQUI-GELS [Suspect]
     Indication: ARTHRALGIA
     Dates: start: 20090901
  2. CLARITHROMYCIN [Suspect]
     Indication: HELICOBACTER INFECTION
     Dates: start: 20110207, end: 20110207
  3. MIKROPAKINE [Suspect]
     Indication: CONVULSION
     Route: 048
     Dates: start: 20101127
  4. HEXATRIONE [Concomitant]
     Indication: ARTHRALGIA
     Route: 014
  5. PHOSPHONEUROS [Concomitant]
     Indication: PRODUCT USED FOR UNKNOWN INDICATION
     Route: 047
  6. LEVOCARNIL [Concomitant]
     Indication: PRODUCT USED FOR UNKNOWN INDICATION
     Route: 048
  7. ADVIL LIQUI-GELS [Suspect]
     Dosage: DOSE FOR 35 KG, 1DF 3 TIMES DAILY
     Route: 048
     Dates: start: 20101231, end: 20110215
  8. NAPROXEN [Suspect]
     Indication: PRODUCT USED FOR UNKNOWN INDICATION
     Route: 048
     Dates: start: 20100427, end: 20101231
  9. UVESTEROL VITAMINES [Concomitant]
     Indication: PRODUCT USED FOR UNKNOWN INDICATION
     Route: 048
     Dates: end: 20110216
  10. NEXIUM [Suspect]
     Indication: GASTRIC ULCER
     Route: 048
     Dates: start: 20110207
  11. AMOXICILLIN TRIHYDRATE [Suspect]
     Indication: HELICOBACTER INFECTION
     Route: 048
     Dates: start: 20110207, end: 20110214
  12. SODIUM BICARBONATES [Concomitant]
     Indication: PRODUCT USED FOR UNKNOWN INDICATION
     Route: 048

REACTIONS (1)
  - RENAL FAILURE ACUTE [None]
